FAERS Safety Report 8533777-4 (Version None)
Quarter: 2012Q3

REPORT INFORMATION
  Report Type: 
  Country: None (occurrence: None)
  Receive Date: 20120724
  Receipt Date: 20120710
  Transmission Date: 20120928
  Serious: Yes (Hospitalization, Disabling)
  Sender: FDA-Public Use
  Company Number: FI-ROCHE-1051382

PATIENT
  Sex: Female

DRUGS (8)
  1. OXIKLORIN [Concomitant]
     Indication: RHEUMATOID ARTHRITIS
     Route: 048
  2. ACTEMRA [Suspect]
     Indication: RHEUMATOID ARTHRITIS
     Route: 042
     Dates: start: 20110919, end: 20111017
  3. METHOTREXATE [Concomitant]
  4. METHOTREXATE [Concomitant]
     Route: 048
  5. HYDROXYCHLOROQUINE SULFATE [Concomitant]
     Route: 048
  6. ACTEMRA [Suspect]
     Dates: start: 20111017
  7. PREDNISOLONE [Concomitant]
     Indication: RHEUMATOID ARTHRITIS
     Route: 048
  8. METHOTREXATE [Concomitant]
     Route: 048

REACTIONS (6)
  - RETROPERITONEAL ABSCESS [None]
  - OSTEONECROSIS [None]
  - INTERVERTEBRAL DISCITIS [None]
  - EXTRADURAL ABSCESS [None]
  - BACTERIAL SEPSIS [None]
  - ABSCESS LIMB [None]
